FAERS Safety Report 9563590 (Version 1)
Quarter: 2013Q3

REPORT INFORMATION
  Report Type: Spontaneous
  Country: None (occurrence: None)
  Receive Date: 20130926
  Receipt Date: 20130926
  Transmission Date: 20140515
  Serious: Yes (Disabling, Other)
  Sender: FDA-Public Use
  Company Number: GER/UKI/13/0034604

PATIENT
  Age: 69 Year
  Sex: Female

DRUGS (4)
  1. ANASTROZOLE [Suspect]
     Indication: POSTOPERATIVE CARE
  2. AMLODIPINE (AMLODIPINE) [Concomitant]
  3. ASPIRIN (ACETYLSALICYLIC ACID) [Concomitant]
  4. LOSARTAN (LOSARTAN) [Concomitant]

REACTIONS (6)
  - Arthralgia [None]
  - Pain in extremity [None]
  - Vascular compression [None]
  - Sleep disorder due to a general medical condition [None]
  - Arthralgia [None]
  - Dysgraphia [None]
